FAERS Safety Report 7150592-7 (Version None)
Quarter: 2010Q4

REPORT INFORMATION
  Report Type: 
  Country: None (occurrence: None)
  Receive Date: 20101210
  Receipt Date: 20101202
  Transmission Date: 20110411
  Serious: Yes (Other)
  Sender: FDA-Public Use
  Company Number: US-PFIZER INC-2010141870

PATIENT
  Sex: Male
  Weight: 78.458 kg

DRUGS (9)
  1. CELEBREX [Suspect]
     Indication: ARTHRITIS
     Dosage: 200 MG, DAILY
     Route: 048
     Dates: start: 20100901, end: 20100901
  2. CELEBREX [Suspect]
     Dosage: 200 MG, 1X/DAY
     Dates: start: 20101001, end: 20100101
  3. VITAMINS [Concomitant]
     Dosage: UNK
  4. GLUCOSAMINE [Concomitant]
     Dosage: UNK
  5. ASCORBIC ACID [Concomitant]
     Dosage: UNK
  6. VITAMIN E [Concomitant]
     Dosage: UNK
  7. CALCIUM [Concomitant]
     Dosage: UNK
  8. FOSAMAX [Concomitant]
     Dosage: UNK
  9. CHONDROITIN [Concomitant]
     Dosage: UNK

REACTIONS (6)
  - ABASIA [None]
  - CHONDROPATHY [None]
  - DRUG INEFFECTIVE [None]
  - DYSSTASIA [None]
  - PAIN [None]
  - POSTURE ABNORMAL [None]
